FAERS Safety Report 9646373 (Version 1)
Quarter: 2013Q4

REPORT INFORMATION
  Report Type: Spontaneous
  Country: DE (occurrence: DE)
  Receive Date: 20131025
  Receipt Date: 20131025
  Transmission Date: 20140711
  Serious: Yes (Congenital Anomaly)
  Sender: FDA-Public Use
  Company Number: DE-WATSON-2013-19227

PATIENT
  Age: 28 Day
  Sex: Male
  Weight: 3.05 kg

DRUGS (4)
  1. MIRTAZAPINE (UNKNOWN) [Suspect]
     Indication: DEPRESSION
     Dosage: 30 MG, DAILY
     Route: 064
  2. CETIRIZIN [Concomitant]
     Indication: SEASONAL ALLERGY
     Dosage: 10 MG, DAILY
     Route: 064
  3. NASONEX [Concomitant]
     Indication: RHINITIS ALLERGIC
     Dosage: UNK, UNK
     Route: 064
  4. FOLIC ACID [Concomitant]
     Indication: PROPHYLAXIS OF NEURAL TUBE DEFECT
     Dosage: 0.8 MG, DAILY
     Route: 064

REACTIONS (6)
  - Congenital aortic valve stenosis [Not Recovered/Not Resolved]
  - Congenital aortic valve incompetence [Not Recovered/Not Resolved]
  - Bicuspid aortic valve [Not Recovered/Not Resolved]
  - Cytogenetic abnormality [Not Recovered/Not Resolved]
  - Atrial septal defect [Not Recovered/Not Resolved]
  - Foetal exposure during pregnancy [Not Recovered/Not Resolved]
